FAERS Safety Report 18668002 (Version 1)
Quarter: 2020Q4

REPORT INFORMATION
  Report Type: Other
  Country: RU (occurrence: RU)
  Receive Date: 20201228
  Receipt Date: 20201228
  Transmission Date: 20210114
  Serious: Yes (Death)
  Sender: FDA-Public Use
  Company Number: RU-FDC LIMITED-2103512

PATIENT

DRUGS (1)
  1. CIPROFLOXACIN. [Suspect]
     Active Substance: CIPROFLOXACIN
     Indication: CLOSTRIDIUM DIFFICILE INFECTION
     Route: 065

REACTIONS (1)
  - Pseudomembranous colitis [Fatal]
